FAERS Safety Report 12234415 (Version 1)
Quarter: 2016Q2

REPORT INFORMATION
  Report Type: Spontaneous
  Country: FR (occurrence: FR)
  Receive Date: 20160404
  Receipt Date: 20160404
  Transmission Date: 20160815
  Serious: Yes (Other)
  Sender: FDA-Public Use
  Company Number: FR-HERITAGE PHARMACEUTICALS-2016HTG00096

PATIENT
  Age: 19 Year
  Sex: Male

DRUGS (3)
  1. SUMATRIPTAN. [Concomitant]
     Active Substance: SUMATRIPTAN
     Indication: CLUSTER HEADACHE
     Dosage: 6 MG, UNK
     Route: 065
  2. VERAPAMIL HYDROCHLORIDE. [Suspect]
     Active Substance: VERAPAMIL HYDROCHLORIDE
     Indication: CLUSTER HEADACHE
     Dosage: 720 MG, 1X/DAY
     Route: 065
  3. EXTENDED RELEASE KETOPROFEN [Concomitant]
     Indication: CLUSTER HEADACHE
     Dosage: 100 MG, UNK
     Route: 065

REACTIONS (5)
  - Asthenia [Recovered/Resolved]
  - Sinus bradycardia [Recovered/Resolved]
  - Atrioventricular block first degree [Recovered/Resolved]
  - Chronotropic incompetence [Recovered/Resolved]
  - Dyspnoea [Recovered/Resolved]
